FAERS Safety Report 8184188-5 (Version None)
Quarter: 2012Q1

REPORT INFORMATION
  Report Type: 
  Country: None (occurrence: None)
  Receive Date: 20120305
  Receipt Date: 20120124
  Transmission Date: 20120608
  Serious: Yes (Hospitalization, Other)
  Sender: FDA-Public Use
  Company Number: US-ROCHE-751884

PATIENT
  Sex: Female
  Weight: 81.6 kg

DRUGS (4)
  1. LISINOPRIL [Concomitant]
     Indication: HYPERTENSION
  2. ATENOLOL [Concomitant]
     Indication: HYPERTENSION
  3. HYDROCHLOROTHIAZIDE [Concomitant]
     Indication: HYPERTENSION
  4. ACCUTANE [Suspect]
     Indication: ACNE
     Route: 065
     Dates: start: 19851016, end: 19860401

REACTIONS (13)
  - RHEUMATOID ARTHRITIS [None]
  - ANAL ABSCESS [None]
  - RECTAL ABSCESS [None]
  - CHEILITIS [None]
  - IRRITABLE BOWEL SYNDROME [None]
  - INFLAMMATORY BOWEL DISEASE [None]
  - DEPRESSION [None]
  - COLITIS ULCERATIVE [None]
  - CROHN'S DISEASE [None]
  - INJURY [None]
  - FISTULA [None]
  - OSTEOPENIA [None]
  - PANCREATITIS CHRONIC [None]
